FAERS Safety Report 15602699 (Version 1)
Quarter: 2018Q4

REPORT INFORMATION
  Report Type: Spontaneous
  Country: US (occurrence: US)
  Receive Date: 20181109
  Receipt Date: 20181109
  Transmission Date: 20190205
  Serious: No
  Sender: FDA-Public Use
  Company Number: US-SA-2018SA307768

PATIENT
  Age: 53 Year
  Sex: Female

DRUGS (1)
  1. ALLEGRA [Suspect]
     Active Substance: FEXOFENADINE HYDROCHLORIDE
     Indication: PNEUMONIA
     Dosage: UNK UNK, QD

REACTIONS (4)
  - Back pain [Unknown]
  - Diarrhoea [Unknown]
  - Cough [Unknown]
  - Myalgia [Unknown]
